FAERS Safety Report 8434301-7 (Version None)
Quarter: 2012Q2

REPORT INFORMATION
  Report Type: 
  Country: None (occurrence: None)
  Receive Date: 20120613
  Receipt Date: 20120608
  Transmission Date: 20120825
  Serious: Yes (Hospitalization)
  Sender: FDA-Public Use
  Company Number: FR-TEVA-342531USA

PATIENT
  Sex: Male

DRUGS (3)
  1. RITUXIMAB [Suspect]
     Indication: CHRONIC LYMPHOCYTIC LEUKAEMIA
     Dates: start: 20111115
  2. RITUXIMAB [Suspect]
     Dates: start: 20111221
  3. TREANDA [Suspect]
     Indication: CHRONIC LYMPHOCYTIC LEUKAEMIA
     Route: 042
     Dates: start: 20111115

REACTIONS (1)
  - HAEMOLYTIC ANAEMIA [None]
